FAERS Safety Report 20357150 (Version 1)
Quarter: 2022Q1

REPORT INFORMATION
  Report Type: Spontaneous
  Country: US (occurrence: US)
  Receive Date: 20220120
  Receipt Date: 20220120
  Transmission Date: 20220423
  Serious: No
  Sender: FDA-Public Use
  Company Number: US-SA-SAC20220118000454

PATIENT
  Age: 66 Year
  Sex: Female
  Weight: 61 kg

DRUGS (8)
  1. DUPIXENT [Suspect]
     Active Substance: DUPILUMAB
     Dosage: 300 MG, QOW
     Route: 058
     Dates: start: 2017
  2. AZITHROMYCIN [Concomitant]
     Active Substance: AZITHROMYCIN
  3. PREDNISONE [Concomitant]
     Active Substance: PREDNISONE
  4. BENZONATATE [Concomitant]
     Active Substance: BENZONATATE
  5. ALBUTEROL SULFATE [Concomitant]
     Active Substance: ALBUTEROL SULFATE
  6. DESONIDE [Concomitant]
     Active Substance: DESONIDE
  7. EUCRISA [Concomitant]
     Active Substance: CRISABOROLE
  8. MYRBETRIQ [Concomitant]
     Active Substance: MIRABEGRON

REACTIONS (2)
  - COVID-19 [Not Recovered/Not Resolved]
  - Dry skin [Unknown]

NARRATIVE: CASE EVENT DATE: 20210101
